FAERS Safety Report 5205835-3 (Version None)
Quarter: 2007Q1

REPORT INFORMATION
  Report Type: 
  Country: None (occurrence: None)
  Receive Date: 20070105
  Receipt Date: 20070105
  Transmission Date: 20070707
  Serious: Yes (Other)
  Sender: FDA-Public Use
  Company Number: None

PATIENT
  Age: 80 Year
  Sex: Female
  Weight: 75 kg

DRUGS (8)
  1. DAPTOMYCIN INJECTION          CUBIST [Suspect]
     Indication: BACTERAEMIA
     Dosage: 450 MG   ONCE DAILY   IV
     Route: 042
     Dates: start: 20061204, end: 20061212
  2. DIPRIVAN [Concomitant]
  3. PROTONIX [Concomitant]
  4. VITAMIN K [Concomitant]
  5. POTASSIUM ACETATE [Concomitant]
  6. HYDROCORTISONE [Concomitant]
  7. ACYCLOVIR [Concomitant]
  8. FLUCONAZOLE [Concomitant]

REACTIONS (2)
  - BLOOD CREATINE PHOSPHOKINASE INCREASED [None]
  - BLOOD CREATINE PHOSPHOKINASE MB INCREASED [None]
